FAERS Safety Report 17386489 (Version 1)
Quarter: 2020Q1

REPORT INFORMATION
  Report Type: Spontaneous
  Country: US (occurrence: US)
  Receive Date: 20200206
  Receipt Date: 20200206
  Transmission Date: 20200409
  Serious: Yes (Other)
  Sender: FDA-Public Use
  Company Number: US-PFIZER INC-2020048183

PATIENT
  Age: 68 Year
  Sex: Female

DRUGS (3)
  1. PROZAC [Concomitant]
     Active Substance: FLUOXETINE HYDROCHLORIDE
     Indication: DEPRESSION
     Dosage: UNK
  2. ALPRAZOLAM. [Suspect]
     Active Substance: ALPRAZOLAM
     Indication: PANIC DISORDER
     Dosage: 0.25 MG, UNK
  3. ALPRAZOLAM. [Suspect]
     Active Substance: ALPRAZOLAM
     Indication: GENERALISED ANXIETY DISORDER
     Dosage: UNK, DAILY (NORMALLY ONLY TAKES 1 1/2 MG TO 2MG A DAY)
     Route: 048

REACTIONS (11)
  - Sedation [Unknown]
  - Drug ineffective [Unknown]
  - Fall [Unknown]
  - Balance disorder [Unknown]
  - Head injury [Unknown]
  - Eye injury [Unknown]
  - Vertigo [Unknown]
  - Concussion [Unknown]
  - Brain oedema [Unknown]
  - Post concussion syndrome [Unknown]
  - VIIIth nerve injury [Unknown]
